FAERS Safety Report 11023029 (Version 2)
Quarter: 2015Q2

REPORT INFORMATION
  Report Type: Spontaneous
  Country: US (occurrence: US)
  Receive Date: 20150413
  Receipt Date: 20150413
  Transmission Date: 20150821
  Serious: No
  Sender: FDA-Public Use
  Company Number: US-ASTELLAS-2015US001595

PATIENT
  Sex: Female

DRUGS (2)
  1. NYSTATIN. [Concomitant]
     Active Substance: NYSTATIN
     Indication: PRODUCT USED FOR UNKNOWN INDICATION
     Dosage: UNK UNK, UNKNOWN FREQ.
     Route: 048
  2. PROTOPIC [Suspect]
     Active Substance: TACROLIMUS
     Indication: LICHEN SCLEROSUS
     Dosage: 0.03 %, THRICE DAILY
     Route: 048
     Dates: start: 20150115

REACTIONS (1)
  - Off label use [Unknown]
